FAERS Safety Report 10599700 (Version 1)
Quarter: 2014Q4

REPORT INFORMATION
  Report Type: Report from Study
  Country: US (occurrence: US)
  Receive Date: 20141121
  Receipt Date: 20141121
  Transmission Date: 20150529
  Serious: Yes (Hospitalization)
  Sender: FDA-Public Use
  Company Number: US-GLAXOSMITHKLINE-US2014GSK019873

PATIENT
  Age: 80 Year
  Sex: Male
  Weight: 61.68 kg

DRUGS (12)
  1. LANTUS [Concomitant]
     Active Substance: INSULIN GLARGINE
     Dosage: UNK
     Dates: start: 20110725
  2. ZOFRAN TABLET [Concomitant]
     Dosage: UNK
     Dates: start: 20131223
  3. DABRAFENIB CAPSULE [Suspect]
     Active Substance: DABRAFENIB
     Indication: PAPILLARY THYROID CANCER
     Dosage: 150 MG, BID
     Route: 048
     Dates: start: 20131211
  4. TRAMETINIB TABLET [Suspect]
     Active Substance: TRAMETINIB
     Indication: PAPILLARY THYROID CANCER
     Dosage: 2 MG, QD
     Dates: start: 20131211
  5. SYNTHROID [Concomitant]
     Active Substance: LEVOTHYROXINE SODIUM
     Dosage: UNK
     Dates: start: 20110725
  6. K-PHOS NEUTRAL [Concomitant]
     Active Substance: POTASSIUM PHOSPHATE\SODIUM PHOSPHATE
     Dosage: UNK
     Dates: start: 20140604
  7. COMPAZINE [Concomitant]
     Active Substance: PROCHLORPERAZINE MALEATE
     Dosage: UNK
     Dates: start: 20131217
  8. FLOMAX (NOS) [Concomitant]
     Dosage: UNK
     Dates: start: 20130731
  9. NOVOLOG [Concomitant]
     Active Substance: INSULIN ASPART
     Dosage: UNK
     Dates: start: 20130731
  10. ATORVASTATIN [Concomitant]
     Active Substance: ATORVASTATIN
     Dosage: UNK
     Dates: start: 20140323
  11. METFORMIN [Concomitant]
     Active Substance: METFORMIN HYDROCHLORIDE
     Dosage: UNK
     Dates: start: 20140312
  12. ASPIRIN. [Concomitant]
     Active Substance: ASPIRIN
     Dosage: UNK
     Dates: start: 20140304

REACTIONS (1)
  - Pyrexia [Recovered/Resolved]

NARRATIVE: CASE EVENT DATE: 20140924
